FAERS Safety Report 9461333 (Version 1)
Quarter: 2013Q3

REPORT INFORMATION
  Report Type: Spontaneous
  Country: US (occurrence: None)
  Receive Date: 20130814
  Receipt Date: 20130814
  Transmission Date: 20140515
  Serious: Yes (Other)
  Sender: FDA-Public Use
  Company Number: None

PATIENT
  Age: 50 Year
  Sex: Male
  Weight: 111.13 kg

DRUGS (3)
  1. CYMBALTA (DULOXETINE HYDROCHLORIDE) [Suspect]
     Indication: BACK PAIN
     Dosage: 60 MG 1 PILL IN MORNING 1 A DAY MOUTH
     Route: 048
     Dates: start: 20110601, end: 20130727
  2. CYMBALTA (DULOXETINE HYDROCHLORIDE) [Suspect]
     Indication: PAIN IN EXTREMITY
     Dosage: 60 MG 1 PILL IN MORNING 1 A DAY MOUTH
     Route: 048
     Dates: start: 20110601, end: 20130727
  3. CYMBALTA (DULOXETINE HYDROCHLORIDE) [Suspect]
     Indication: DIABETIC NEUROPATHY
     Dosage: 60 MG 1 PILL IN MORNING 1 A DAY MOUTH
     Route: 048
     Dates: start: 20110601, end: 20130727

REACTIONS (3)
  - Scab [None]
  - Blister [None]
  - Localised infection [None]
